FAERS Safety Report 12468065 (Version 1)
Quarter: 2016Q2

REPORT INFORMATION
  Report Type: Spontaneous
  Country: US (occurrence: US)
  Receive Date: 20160615
  Receipt Date: 20160615
  Transmission Date: 20160815
  Serious: Yes (Hospitalization, Other)
  Sender: FDA-Public Use
  Company Number: US-TEVA-667017USA

PATIENT
  Age: 42 Year
  Sex: Female

DRUGS (1)
  1. COPAXONE [Suspect]
     Active Substance: GLATIRAMER ACETATE
     Indication: MULTIPLE SCLEROSIS
     Route: 058
     Dates: start: 20150707

REACTIONS (10)
  - Hypoaesthesia [Recovered/Resolved]
  - Burning sensation [Recovered/Resolved]
  - Communication disorder [Recovered/Resolved]
  - Hypoacusis [Recovered/Resolved]
  - Vision blurred [Recovered/Resolved]
  - Tachycardia [Recovered/Resolved]
  - Multiple sclerosis relapse [Recovered/Resolved]
  - Dehydration [Recovered/Resolved]
  - Asthenia [Recovered/Resolved]
  - Hypothermia [Recovered/Resolved]

NARRATIVE: CASE EVENT DATE: 20160415
